FAERS Safety Report 13567304 (Version 1)
Quarter: 2017Q2

REPORT INFORMATION
  Report Type: Spontaneous
  Country: US (occurrence: US)
  Receive Date: 20170519
  Receipt Date: 20170519
  Transmission Date: 20170830
  Serious: Yes (Hospitalization)
  Sender: FDA-Public Use
  Company Number: None

PATIENT
  Age: 56 Year
  Sex: Male

DRUGS (1)
  1. AFINITOR [Suspect]
     Active Substance: EVEROLIMUS
     Indication: RENAL CANCER
     Dosage: 10 MG 28 DAYS TABLET
     Dates: start: 20170206, end: 20170426

REACTIONS (3)
  - Seizure [None]
  - Pneumonitis [None]
  - Pneumonia [None]

NARRATIVE: CASE EVENT DATE: 20170426
